FAERS Safety Report 9675026 (Version 1)
Quarter: 2013Q4

REPORT INFORMATION
  Report Type: Spontaneous
  Country: US (occurrence: None)
  Receive Date: 20131106
  Receipt Date: 20131106
  Transmission Date: 20140711
  Serious: Yes (Life-Threatening, Hospitalization)
  Sender: FDA-Public Use
  Company Number: None

PATIENT
  Age: 23 Year
  Sex: Female

DRUGS (1)
  1. HYDROMORPHONE [Suspect]
     Indication: PAIN
     Dosage: 4MG PRN/AS NEEDED ORAL
     Route: 048
     Dates: start: 20110912, end: 20110917

REACTIONS (3)
  - Sedation [None]
  - Unresponsive to stimuli [None]
  - Incorrect dose administered [None]
